FAERS Safety Report 19652829 (Version 2)
Quarter: 2021Q4

REPORT INFORMATION
  Report Type: Spontaneous
  Country: US (occurrence: US)
  Receive Date: 20210803
  Receipt Date: 20211011
  Transmission Date: 20220303
  Serious: No
  Sender: FDA-Public Use
  Company Number: NVSC2021US160368

PATIENT
  Sex: Female

DRUGS (1)
  1. KESIMPTA [Suspect]
     Active Substance: OFATUMUMAB
     Indication: Multiple sclerosis
     Route: 065

REACTIONS (10)
  - Flushing [Unknown]
  - Fatigue [Unknown]
  - Peripheral coldness [Unknown]
  - Bladder disorder [Unknown]
  - Vertigo [Unknown]
  - Peroneal nerve palsy [Unknown]
  - Fall [Unknown]
  - Temperature intolerance [Unknown]
  - Sensitivity to weather change [Unknown]
  - Headache [Unknown]
